FAERS Safety Report 11044044 (Version 1)
Quarter: 2015Q2

REPORT INFORMATION
  Report Type: Spontaneous
  Country: US (occurrence: US)
  Receive Date: 20150417
  Receipt Date: 20150417
  Transmission Date: 20150821
  Serious: Yes (Other)
  Sender: FDA-Public Use
  Company Number: US-ELI_LILLY_AND_COMPANY-US201504004948

PATIENT
  Sex: Male

DRUGS (6)
  1. CARVEDILOL. [Concomitant]
     Active Substance: CARVEDILOL
  2. CLONAZEPAM. [Concomitant]
     Active Substance: CLONAZEPAM
  3. HUMULIN 70/30 [Suspect]
     Active Substance: INSULIN HUMAN
     Indication: TYPE 2 DIABETES MELLITUS
     Dosage: UNK
     Route: 065
     Dates: start: 2013
  4. AMITIZA [Concomitant]
     Active Substance: LUBIPROSTONE
  5. RAPAFLO [Concomitant]
     Active Substance: SILODOSIN
  6. AMOXICILLIN. [Concomitant]
     Active Substance: AMOXICILLIN

REACTIONS (3)
  - Pancreatitis [Unknown]
  - Blood glucose decreased [Unknown]
  - Blood glucose increased [Unknown]
